FAERS Safety Report 5601589-7 (Version None)
Quarter: 2008Q1

REPORT INFORMATION
  Report Type: 
  Country: None (occurrence: None)
  Receive Date: 20080124
  Receipt Date: 20080116
  Transmission Date: 20080703
  Serious: Yes (Hospitalization)
  Sender: FDA-Public Use
  Company Number: US-BAXTER-2008BH000572

PATIENT
  Sex: Female

DRUGS (3)
  1. HEPARIN SODIUM [Suspect]
     Indication: THROMBOSIS PROPHYLAXIS
     Route: 042
     Dates: start: 20070901, end: 20071010
  2. HEPARIN SODIUM [Suspect]
     Route: 042
     Dates: start: 20071119, end: 20071101
  3. SODIUM CHLORIDE [Concomitant]
     Indication: DEHYDRATION
     Dosage: DOSE UNIT:UNKNOWN
     Route: 042
     Dates: start: 20070926

REACTIONS (13)
  - CARDIAC DISORDER [None]
  - CHILLS [None]
  - DIABETES MELLITUS [None]
  - DIARRHOEA [None]
  - GASTRIC DISORDER [None]
  - HEADACHE [None]
  - HYPERTENSION [None]
  - INSOMNIA [None]
  - NERVOUSNESS [None]
  - PYREXIA [None]
  - TACHYCARDIA [None]
  - THYROID DISORDER [None]
  - VOMITING [None]
